FAERS Safety Report 9402429 (Version 1)
Quarter: 2013Q3

REPORT INFORMATION
  Report Type: Spontaneous
  Country: US (occurrence: None)
  Receive Date: 20130712
  Receipt Date: 20130712
  Transmission Date: 20140515
  Serious: Yes (Hospitalization)
  Sender: FDA-Public Use
  Company Number: None

PATIENT
  Age: 71 Year
  Sex: Male
  Weight: 97.5 kg

DRUGS (7)
  1. DIGOXIN [Suspect]
     Indication: ATRIAL FIBRILLATION
     Route: 048
  2. ALLOPURINOL 300MG [Concomitant]
  3. METFORMIN 500MG [Concomitant]
  4. COREG 18.75 MG [Concomitant]
  5. IRBESARTAN 100MG [Concomitant]
  6. FUROSEMIDE 40MG [Concomitant]
  7. AMLODIPINE 5MG [Concomitant]

REACTIONS (7)
  - Dyspnoea [None]
  - Lethargy [None]
  - Renal impairment [None]
  - Diarrhoea [None]
  - Decreased appetite [None]
  - Toxicity to various agents [None]
  - Atrial fibrillation [None]
